FAERS Safety Report 20731127 (Version 2)
Quarter: 2022Q2

REPORT INFORMATION
  Report Type: Spontaneous
  Country: US (occurrence: US)
  Receive Date: 20220420
  Receipt Date: 20220504
  Transmission Date: 20220721
  Serious: No
  Sender: FDA-Public Use
  Company Number: US-PFIZER INC-202101259505

PATIENT
  Age: 75 Year
  Sex: Female
  Weight: 73.03 kg

DRUGS (4)
  1. IBRANCE [Suspect]
     Active Substance: PALBOCICLIB
     Indication: Bone cancer metastatic
     Dosage: 100 MG, CYCLIC (1 TABLET DAILY FOR 7 DAYS ON AND 7 DAYS OFF)
     Route: 048
     Dates: start: 202012
  2. LETROZOLE [Concomitant]
     Active Substance: LETROZOLE
     Indication: Neoplasm malignant
     Dosage: UNK
     Dates: start: 2020
  3. XGEVA [Concomitant]
     Active Substance: DENOSUMAB
     Indication: Bone disorder
     Dosage: UNK, EVERY 84 TO 90 DAYS AT A TIME
     Route: 058
     Dates: start: 2020, end: 20211230
  4. SYNTHROID [Concomitant]
     Active Substance: LEVOTHYROXINE SODIUM
     Indication: Hypothyroidism
     Dosage: UNK

REACTIONS (5)
  - Off label use [Unknown]
  - Dry skin [Unknown]
  - Alopecia [Not Recovered/Not Resolved]
  - Sinusitis [Recovering/Resolving]
  - Oropharyngeal pain [Recovering/Resolving]

NARRATIVE: CASE EVENT DATE: 20210101
